FAERS Safety Report 8059314-9 (Version None)
Quarter: 2012Q1

REPORT INFORMATION
  Report Type: 
  Country: None (occurrence: None)
  Receive Date: 20120112
  Receipt Date: 20111228
  Transmission Date: 20120608
  Serious: Yes (Hospitalization)
  Sender: FDA-Public Use
  Company Number: B0772998A

PATIENT
  Sex: Female

DRUGS (5)
  1. LEVOTHYROXINE SODIUM [Concomitant]
  2. CEFUROXIME SODIUM [Suspect]
     Indication: ACUTE SINUSITIS
     Dosage: 500 MG / TWICE PER DAY / ORAL
     Route: 048
     Dates: start: 20110301, end: 20110307
  3. CETIRIZINE HCL [Concomitant]
  4. MAGNES. SALT + OMEPRAZOLE [Concomitant]
  5. OESTRADIOL [Concomitant]

REACTIONS (6)
  - ABDOMINAL DISCOMFORT [None]
  - TYPE III IMMUNE COMPLEX MEDIATED REACTION [None]
  - DYSPNOEA [None]
  - SIMILAR REACTION ON PREVIOUS EXPOSURE TO DRUG [None]
  - NAUSEA [None]
  - DYSPHONIA [None]
